FAERS Safety Report 9849147 (Version 1)
Quarter: 2014Q1

REPORT INFORMATION
  Report Type: Spontaneous
  Country: US (occurrence: None)
  Receive Date: 20140127
  Receipt Date: 20140127
  Transmission Date: 20141002
  Serious: Yes (Other)
  Sender: FDA-Public Use
  Company Number: None

PATIENT
  Age: 63 Year
  Sex: Female
  Weight: 81.65 kg

DRUGS (1)
  1. PREPOPIK [Suspect]
     Indication: COLONOSCOPY
     Dosage: 2 PACKES POWDER MIX WITH H20 ONE 4 PM, ONE 9PM TAKEN BY MOUTH
     Route: 048
     Dates: start: 20140116, end: 20140116

REACTIONS (8)
  - Weight decreased [None]
  - Malaise [None]
  - Vomiting [None]
  - Diarrhoea [None]
  - Hyperhidrosis [None]
  - Asthenia [None]
  - Palpitations [None]
  - Atrial fibrillation [None]
